FAERS Safety Report 8425865-8 (Version None)
Quarter: 2012Q2

REPORT INFORMATION
  Report Type: 
  Country: None (occurrence: None)
  Receive Date: 20120611
  Receipt Date: 20120606
  Transmission Date: 20120825
  Serious: Yes (Life-Threatening)
  Sender: FDA-Public Use
  Company Number: JP-ASTELLAS-2012JP004147

PATIENT
  Sex: Female
  Weight: 35.7 kg

DRUGS (18)
  1. VESICARE [Suspect]
     Indication: MIXED INCONTINENCE
     Dosage: 2.5 MG, UID/QD
     Route: 048
     Dates: start: 20120509, end: 20120510
  2. DOXAZOSIN MESYLATE [Concomitant]
     Indication: HYPERTENSION
     Dosage: 2 MG, QID
     Route: 048
     Dates: start: 20091208, end: 20120510
  3. CARVEDILOL [Concomitant]
     Indication: CARDIAC FAILURE CHRONIC
  4. ROCEPHIN [Concomitant]
     Indication: PYELONEPHRITIS ACUTE
     Dosage: 1 G, UNKNOWN/D
     Route: 065
     Dates: start: 20120501, end: 20120507
  5. CARVEDILOL [Concomitant]
     Indication: HYPERTENSION
     Dosage: 2.5 MG, TID
     Route: 048
     Dates: start: 20100302, end: 20120510
  6. ALDOMET [Concomitant]
     Indication: HYPERTENSION
     Dosage: 125 MG, BID
     Route: 048
     Dates: start: 20120403, end: 20120510
  7. LEVOFLOXACIN [Suspect]
     Dosage: 250 MG, UID/QD
     Route: 048
     Dates: start: 20120510, end: 20120510
  8. PROMACTA [Concomitant]
     Indication: PROPHYLAXIS
     Dosage: 75 MG, BID
     Route: 048
     Dates: start: 20120507
  9. LEVOFLOXACIN [Suspect]
     Indication: PYELONEPHRITIS ACUTE
     Dosage: 500 MG, UID/QD
     Route: 048
     Dates: start: 20120508, end: 20120508
  10. LASIX [Concomitant]
     Indication: CARDIAC FAILURE CHRONIC
  11. SPIROPENT [Concomitant]
     Indication: MIXED INCONTINENCE
     Dosage: 10 MG, BID
     Route: 048
     Dates: start: 20120508, end: 20120510
  12. CEFTRIAXONE SODIUM [Concomitant]
     Indication: PYELONEPHRITIS ACUTE
     Dosage: 1 G, UID/QD
     Route: 041
     Dates: start: 20120501, end: 20120507
  13. FAMOTIDINE [Concomitant]
     Indication: GASTRITIS PROPHYLAXIS
     Dosage: 10 MG, UID/QD
     Route: 048
     Dates: start: 20100330
  14. SODIUM BICARBONATE [Concomitant]
     Indication: RENAL FAILURE CHRONIC
     Dosage: 0.5 G, UID/QD
     Route: 048
     Dates: start: 20111104
  15. VESICARE [Suspect]
     Dosage: 5 MG, UID/QD
     Route: 048
     Dates: start: 20120508, end: 20120508
  16. ATELEC [Concomitant]
     Indication: HYPERTENSION
     Dosage: 20 MG, UID/QD
     Route: 048
     Dates: start: 20111206, end: 20120510
  17. LASIX [Concomitant]
     Indication: RENAL FAILURE CHRONIC
     Dosage: 10 MG, UID/QD
     Route: 048
     Dates: start: 20110510
  18. KREMEZIN [Concomitant]
     Indication: RENAL FAILURE CHRONIC
     Dosage: 2 G, TID
     Route: 048
     Dates: start: 20120506

REACTIONS (2)
  - CARDIAC ARREST [None]
  - ELECTROCARDIOGRAM QT PROLONGED [None]
